FAERS Safety Report 4396282-5 (Version None)
Quarter: 2004Q3

REPORT INFORMATION
  Report Type: 
  Country: None (occurrence: None)
  Receive Date: 20040713
  Receipt Date: 20040303
  Transmission Date: 20050211
  Serious: Yes (Death, Hospitalization)
  Sender: FDA-Public Use
  Company Number: US-GLAXOSMITHKLINE-A0501111A

PATIENT
  Age: 41 Year
  Sex: Female
  Weight: 50 kg

DRUGS (7)
  1. IMITREX [Suspect]
     Indication: MIGRAINE
     Dosage: 50MG AS REQUIRED
     Route: 048
     Dates: start: 20021001
  2. EXCEDRIN (MIGRAINE) [Suspect]
     Indication: MIGRAINE
  3. ADVIL [Concomitant]
  4. ASPIRIN [Concomitant]
  5. NASACORT [Concomitant]
  6. BIRTH CONTROL PILLS [Concomitant]
     Indication: CONTRACEPTION
  7. AFRIN [Concomitant]
     Route: 045

REACTIONS (6)
  - APHASIA [None]
  - DYSARTHRIA [None]
  - FACIAL PALSY [None]
  - HAEMODYNAMIC INSTABILITY [None]
  - ISCHAEMIC STROKE [None]
  - PUPILLARY DISORDER [None]
